FAERS Safety Report 7435008-5 (Version None)
Quarter: 2011Q2

REPORT INFORMATION
  Report Type: 
  Country: None (occurrence: None)
  Receive Date: 20110425
  Receipt Date: 20110418
  Transmission Date: 20111010
  Serious: No
  Sender: FDA-Public Use
  Company Number: US-B.I. PHARMACEUTICALS,INC./RIDGEFIELD-2011-BP-11057BP

PATIENT
  Age: 67 Year
  Sex: Male

DRUGS (4)
  1. GABAPENTIN [Concomitant]
     Indication: HERPES ZOSTER
  2. SIMBASTATIN [Concomitant]
     Indication: BLOOD CHOLESTEROL INCREASED
  3. PRADAXA [Suspect]
     Indication: ATRIAL FIBRILLATION
     Dosage: 300 MG
     Route: 048
     Dates: start: 20110301
  4. ACETAMINOPHEN W/ CODEINE TAB [Concomitant]
     Indication: HERPES ZOSTER

REACTIONS (3)
  - NIGHT SWEATS [None]
  - DIZZINESS [None]
  - ASTHENIA [None]
